FAERS Safety Report 15075220 (Version 1)
Quarter: 2018Q2

REPORT INFORMATION
  Report Type: Spontaneous
  Country: US (occurrence: US)
  Receive Date: 20180627
  Receipt Date: 20180627
  Transmission Date: 20180711
  Serious: No
  Sender: FDA-Public Use
  Company Number: US-SAOL THERAPEUTICS-2018SAO00137

PATIENT
  Age: 57 Year
  Sex: Male

DRUGS (3)
  1. PRIALT [Suspect]
     Active Substance: ZICONOTIDE ACETATE
     Dosage: 4.3 ?G, \DAY
     Route: 037
  2. BUPIVACAINE. [Suspect]
     Active Substance: BUPIVACAINE
     Dosage: 3.44 MG, \DAY
     Route: 037
  3. COMPOUNDED BACLOFEN [Suspect]
     Active Substance: BACLOFEN
     Dosage: 44.82 ?G, \DAY
     Route: 037

REACTIONS (1)
  - Pain [Unknown]

NARRATIVE: CASE EVENT DATE: 20180129
